FAERS Safety Report 13226648 (Version 1)
Quarter: 2017Q1

REPORT INFORMATION
  Report Type: Spontaneous
  Country: US (occurrence: US)
  Receive Date: 20170213
  Receipt Date: 20170213
  Transmission Date: 20170428
  Serious: No
  Sender: FDA-Public Use
  Company Number: US-MEDA-2017010119

PATIENT
  Sex: Female

DRUGS (2)
  1. FLUTICASONE. [Concomitant]
     Active Substance: FLUTICASONE
  2. ASTEPRO [Suspect]
     Active Substance: AZELASTINE HYDROCHLORIDE
     Dates: start: 2010, end: 2011

REACTIONS (1)
  - Nasal discomfort [Recovered/Resolved]

NARRATIVE: CASE EVENT DATE: 2010
